FAERS Safety Report 10774943 (Version 1)
Quarter: 2015Q1

REPORT INFORMATION
  Report Type: Spontaneous
  Country: CA (occurrence: CA)
  Receive Date: 20150209
  Receipt Date: 20150209
  Transmission Date: 20150721
  Serious: Yes (Other)
  Sender: FDA-Public Use
  Company Number: CA-JNJFOC-20150200182

PATIENT
  Age: 11 Year
  Sex: Male
  Weight: 54 kg

DRUGS (2)
  1. CONCERTA [Suspect]
     Active Substance: METHYLPHENIDATE HYDROCHLORIDE
     Indication: ATTENTION DEFICIT/HYPERACTIVITY DISORDER
     Dosage: THERAPY DURATION WAS 7 YEARS
     Route: 048
  2. CONCERTA [Suspect]
     Active Substance: METHYLPHENIDATE HYDROCHLORIDE
     Indication: ATTENTION DEFICIT/HYPERACTIVITY DISORDER
     Route: 048

REACTIONS (6)
  - Affect lability [Recovered/Resolved]
  - Anger [Recovered/Resolved]
  - Aggression [Recovered/Resolved]
  - Crying [Recovered/Resolved]
  - Anxiety [Recovered/Resolved]
  - Conversion disorder [Recovered/Resolved]
